FAERS Safety Report 21042200 (Version 5)
Quarter: 2023Q1

REPORT INFORMATION
  Report Type: Report from Study
  Country: BR (occurrence: BR)
  Receive Date: 20220705
  Receipt Date: 20230207
  Transmission Date: 20230418
  Serious: Yes (Other)
  Sender: FDA-Public Use
  Company Number: BR-NOVARTISPH-NVSC2022BR150169

PATIENT
  Sex: Female
  Weight: 74 kg

DRUGS (7)
  1. KISQALI [Suspect]
     Active Substance: RIBOCICLIB
     Indication: Breast cancer
     Dosage: 3 DOSAGE FORM
     Route: 048
     Dates: start: 20220315
  2. KISQALI [Suspect]
     Active Substance: RIBOCICLIB
     Indication: Metastases to bone
     Dosage: 3 DOSAGE FORM, QD
     Route: 048
     Dates: start: 20220315
  3. FULVESTRANT [Suspect]
     Active Substance: FULVESTRANT
     Indication: Breast cancer
     Dosage: UNK
     Route: 030
  4. FULVESTRANT [Suspect]
     Active Substance: FULVESTRANT
     Indication: Metastases to bone
     Dosage: 2 DOSAGE FORM, Q4W
     Route: 030
     Dates: start: 20220315
  5. XGEVA [Concomitant]
     Active Substance: DENOSUMAB
     Indication: Breast cancer
     Dosage: UNK
     Route: 058
  6. XGEVA [Concomitant]
     Active Substance: DENOSUMAB
     Indication: Metastases to bone
     Dosage: 1 DOSAGE FORM, Q4W
     Route: 058
     Dates: start: 20220315
  7. ZOLADEX [Concomitant]
     Active Substance: GOSERELIN ACETATE
     Indication: Menopause
     Dosage: 1 DOSAGE FORM (EVERY 3 MONTHS)
     Route: 058
     Dates: start: 20220315

REACTIONS (10)
  - Vomiting [Recovered/Resolved]
  - Metastases to bone [Recovering/Resolving]
  - Emotional disorder [Recovering/Resolving]
  - Mental disorder [Recovering/Resolving]
  - Fatigue [Not Recovered/Not Resolved]
  - Dizziness [Recovered/Resolved]
  - Mobility decreased [Recovering/Resolving]
  - Pain [Recovering/Resolving]
  - Nausea [Recovered/Resolved]
  - Nasopharyngitis [Recovered/Resolved]
